FAERS Safety Report 14866172 (Version 2)
Quarter: 2018Q4

REPORT INFORMATION
  Report Type: Spontaneous
  Country: US (occurrence: US)
  Receive Date: 20180508
  Receipt Date: 20181010
  Transmission Date: 20190204
  Serious: No
  Sender: FDA-Public Use
  Company Number: US-ROCHE-2054893

PATIENT
  Sex: Female

DRUGS (7)
  1. ALENDRONATE [Concomitant]
     Active Substance: ALENDRONATE SODIUM
     Route: 065
  2. ESBRIET [Suspect]
     Active Substance: PIRFENIDONE
     Indication: PULMONARY FIBROSIS
     Dosage: 1 TABLET BY MOUTH 3 TIMES A DAY WITH MEALS
     Route: 048
     Dates: start: 2017
  3. ESBRIET [Suspect]
     Active Substance: PIRFENIDONE
     Dosage: TAKE 1TAB BY MOUTH 3X A DAY WITH MEALS
     Route: 048
     Dates: start: 201710
  4. ESBRIET [Suspect]
     Active Substance: PIRFENIDONE
     Dosage: PRESENT;1 TAB BY MOUTH 3 TIMES A DAY WITH MEALS
     Route: 048
     Dates: start: 20171110
  5. LEVOTHYROXIN [Concomitant]
     Active Substance: LEVOTHYROXINE
     Route: 065
  6. PREDNISONE. [Concomitant]
     Active Substance: PREDNISONE
     Route: 065
  7. AZITHROMYCIN ANHYDROUS. [Concomitant]
     Active Substance: AZITHROMYCIN ANHYDROUS
     Route: 065

REACTIONS (7)
  - Pharyngitis [Not Recovered/Not Resolved]
  - Sinusitis [Not Recovered/Not Resolved]
  - Cough [Not Recovered/Not Resolved]
  - Fatigue [Not Recovered/Not Resolved]
  - Insomnia [Not Recovered/Not Resolved]
  - Productive cough [Not Recovered/Not Resolved]
  - Nausea [Not Recovered/Not Resolved]
